FAERS Safety Report 8091974-9 (Version None)
Quarter: 2012Q1

REPORT INFORMATION
  Report Type: 
  Country: None (occurrence: None)
  Receive Date: 20120129
  Receipt Date: 20111230
  Transmission Date: 20120608
  Serious: No
  Sender: FDA-Public Use
  Company Number: US-ABBOTT-11P-163-0868148-00

PATIENT
  Age: 30 Year
  Sex: Female

DRUGS (10)
  1. CYPROHEPTADINE HCL [Concomitant]
     Indication: NIGHTMARE
     Dosage: AT HS
  2. METFORMIN HCL [Concomitant]
     Indication: DIABETES MELLITUS
  3. PERCOCET-5 [Concomitant]
     Indication: PAIN
     Dosage: PRN ONE EVERY OTHER DAY
  4. LAMOTRIGINE [Concomitant]
     Indication: BIPOLAR I DISORDER
  5. RISPERIDONE [Concomitant]
     Indication: BIPOLAR DISORDER
     Dosage: AT HS
  6. HUMIRA [Suspect]
     Indication: PSORIATIC ARTHROPATHY
     Dates: start: 20111015
  7. HUMIRA [Suspect]
     Indication: PSORIASIS
  8. GLYBURIDE [Concomitant]
     Indication: DIABETES MELLITUS
  9. WELLBUTRIN [Concomitant]
     Indication: DEPRESSION
     Dosage: BID
  10. LORAZEPAM [Concomitant]
     Indication: ANXIETY
     Dosage: DAILY

REACTIONS (5)
  - WRONG TECHNIQUE IN DRUG USAGE PROCESS [None]
  - DRUG INEFFECTIVE [None]
  - INJECTION SITE HAEMATOMA [None]
  - INCORRECT DOSE ADMINISTERED [None]
  - DRUG EFFECT DECREASED [None]
